FAERS Safety Report 8790598 (Version 1)
Quarter: 2012Q4

REPORT INFORMATION
  Report Type: Spontaneous
  Country: US (occurrence: None)
  Receive Date: 20120912
  Receipt Date: 20120912
  Transmission Date: 20130627
  Serious: Yes (Hospitalization)
  Sender: FDA-Public Use
  Company Number: None

PATIENT
  Sex: Male
  Weight: 85.3 kg

DRUGS (6)
  1. EVEROLIMUS [Suspect]
     Dates: end: 20120904
  2. AMLODIPINE BESYLATE [Concomitant]
  3. HYDROCODONE-ACETAMINOPHEN [Concomitant]
  4. LEVOTHYROXINE SODIUM [Concomitant]
  5. LORAZEPAM [Concomitant]
  6. ESCITALOPRAM OXALATE [Concomitant]

REACTIONS (5)
  - Dyspnoea [None]
  - Pulmonary mass [None]
  - Tachycardia [None]
  - Aortic stenosis [None]
  - Disease progression [None]
